FAERS Safety Report 5350553-4 (Version None)
Quarter: 2007Q2

REPORT INFORMATION
  Report Type: 
  Country: None (occurrence: None)
  Receive Date: 20070608
  Receipt Date: 20070605
  Transmission Date: 20071010
  Serious: Yes (Other)
  Sender: FDA-Public Use
  Company Number: HQWYE322102APR07

PATIENT
  Sex: Female
  Weight: 56.3 kg

DRUGS (2)
  1. PREMPRO [Suspect]
     Indication: HORMONE REPLACEMENT THERAPY
     Route: 048
     Dates: start: 20060301
  2. SYNTHROID [Concomitant]
     Route: 048
     Dates: start: 20020301

REACTIONS (4)
  - COELIAC DISEASE [None]
  - CONDITION AGGRAVATED [None]
  - MALABSORPTION [None]
  - WEIGHT DECREASED [None]
